FAERS Safety Report 6079266-0 (Version None)
Quarter: 2009Q1

REPORT INFORMATION
  Report Type: 
  Country: None (occurrence: None)
  Receive Date: 20090216
  Receipt Date: 20090209
  Transmission Date: 20090719
  Serious: Yes (Hospitalization, Other)
  Sender: FDA-Public Use
  Company Number: US-ELI_LILLY_AND_COMPANY-US200902002049

PATIENT
  Age: 63 Year
  Sex: Female

DRUGS (1)
  1. HUMULIN R [Suspect]
     Dates: start: 19990101

REACTIONS (6)
  - CONVULSION [None]
  - INFLUENZA [None]
  - LOSS OF CONSCIOUSNESS [None]
  - RENAL IMPAIRMENT [None]
  - SENSORY LOSS [None]
  - VOMITING [None]
